FAERS Safety Report 7553649-1 (Version None)
Quarter: 2011Q2

REPORT INFORMATION
  Report Type: 
  Country: None (occurrence: None)
  Receive Date: 20110617
  Receipt Date: 20110114
  Transmission Date: 20111010
  Serious: No
  Sender: FDA-Public Use
  Company Number: US-MYLANLABS-2011S1001138

PATIENT
  Age: 76 Year
  Sex: Male

DRUGS (6)
  1. TRAMADOL HCL [Concomitant]
  2. AZILECT [Concomitant]
  3. OMEPRAZOLE [Suspect]
     Indication: GASTROOESOPHAGEAL REFLUX DISEASE
     Route: 048
     Dates: start: 20100801
  4. ACIPHEX [Suspect]
     Indication: GASTROOESOPHAGEAL REFLUX DISEASE
     Route: 048
     Dates: start: 20100301, end: 20100801
  5. COUMADIN [Concomitant]
  6. SINEMET [Concomitant]

REACTIONS (2)
  - ORAL PAIN [None]
  - STOMATITIS [None]
